FAERS Safety Report 9077142 (Version 1)
Quarter: 2013Q1

REPORT INFORMATION
  Report Type: Report from Study
  Country: US (occurrence: US)
  Receive Date: 20130129
  Receipt Date: 20130129
  Transmission Date: 20140127
  Serious: No
  Sender: FDA-Public Use
  Company Number: US-ABBOTT-12P-163-0946481-00

PATIENT
  Age: 38 Year
  Sex: Male

DRUGS (4)
  1. HUMIRA 40 MG/0.8 ML PEN [Suspect]
     Indication: PSORIATIC ARTHROPATHY
     Route: 058
     Dates: start: 20120405
  2. ZOLOFT [Concomitant]
     Indication: DEPRESSION
     Dosage: 200MG DAILY
     Route: 048
  3. ZOLOFT [Concomitant]
     Indication: ANXIETY
  4. ATIVAN [Concomitant]
     Indication: ANXIETY

REACTIONS (4)
  - Pain [Not Recovered/Not Resolved]
  - Back pain [Not Recovered/Not Resolved]
  - Spinal pain [Not Recovered/Not Resolved]
  - Local swelling [Not Recovered/Not Resolved]
